FAERS Safety Report 5767081-4 (Version None)
Quarter: 2008Q2

REPORT INFORMATION
  Report Type: 
  Country: None (occurrence: None)
  Receive Date: 20080612
  Receipt Date: 20080605
  Transmission Date: 20081010
  Serious: Yes (Other)
  Sender: FDA-Public Use
  Company Number: ES-JNJFOC-20080601477

PATIENT
  Age: 57 Year
  Sex: Female

DRUGS (4)
  1. TOPAMAX [Suspect]
     Indication: BULIMIA NERVOSA
     Route: 048
  2. FLUOXETINE HCL [Concomitant]
     Indication: DRUG USE FOR UNKNOWN INDICATION
  3. LEVOTHROID [Concomitant]
     Indication: DRUG USE FOR UNKNOWN INDICATION
  4. TRANKIMACIN [Concomitant]
     Indication: DRUG USE FOR UNKNOWN INDICATION

REACTIONS (2)
  - DISORIENTATION [None]
  - HEADACHE [None]
